FAERS Safety Report 16449936 (Version 3)
Quarter: 2019Q4

REPORT INFORMATION
  Report Type: Report from Study
  Country: US (occurrence: US)
  Receive Date: 20190619
  Receipt Date: 20191029
  Transmission Date: 20200122
  Serious: Yes (Other)
  Sender: FDA-Public Use
  Company Number: US-AMGEN-USASP2019094669

PATIENT
  Age: 70 Year
  Sex: Male
  Weight: 76.19 kg

DRUGS (1)
  1. REPATHA [Suspect]
     Active Substance: EVOLOCUMAB
     Indication: HYPERCHOLESTEROLAEMIA
     Dosage: 140 MILLIGRAM, Q2WK
     Route: 065
     Dates: start: 2017, end: 2019

REACTIONS (2)
  - Rheumatoid arthritis [Unknown]
  - Adverse event [Unknown]

NARRATIVE: CASE EVENT DATE: 2017
